FAERS Safety Report 16255438 (Version 1)
Quarter: 2019Q2

REPORT INFORMATION
  Report Type: Spontaneous
  Country: US (occurrence: US)
  Receive Date: 20190430
  Receipt Date: 20190430
  Transmission Date: 20190711
  Serious: No
  Sender: FDA-Public Use
  Company Number: US-ASTRAZENECA-2019SE52209

PATIENT
  Age: 65 Year
  Sex: Female

DRUGS (1)
  1. TAGRISSO [Suspect]
     Active Substance: OSIMERTINIB
     Indication: NON-SMALL CELL LUNG CANCER STAGE II
     Route: 048

REACTIONS (4)
  - Ejection fraction abnormal [Unknown]
  - Cardiomyopathy [Unknown]
  - Liver function test increased [Unknown]
  - Dyspnoea [Unknown]
